FAERS Safety Report 6635425-7 (Version None)
Quarter: 2010Q1

REPORT INFORMATION
  Report Type: 
  Country: None (occurrence: None)
  Receive Date: 20100315
  Receipt Date: 20090701
  Transmission Date: 20100710
  Serious: No
  Sender: FDA-Public Use
  Company Number: US-ABBOTT-09P-163-0583621-00

PATIENT
  Sex: Female

DRUGS (11)
  1. DEPAKOTE [Suspect]
     Indication: BIPOLAR DISORDER
     Route: 048
     Dates: start: 20090601, end: 20090601
  2. DEPAKOTE [Suspect]
     Indication: VICTIM OF SPOUSAL ABUSE
  3. DEPAKOTE [Suspect]
     Indication: INJURY
  4. DEPAKOTE ER [Suspect]
     Indication: BIPOLAR DISORDER
     Route: 048
     Dates: start: 20020101, end: 20090601
  5. DEPAKOTE ER [Suspect]
     Indication: VICTIM OF SPOUSAL ABUSE
     Route: 048
     Dates: start: 20090701
  6. DEPAKOTE ER [Suspect]
     Indication: INJURY
  7. UNKNOWN PROTEIN SHAKE [Suspect]
     Indication: BLOOD GLUCOSE ABNORMAL
     Route: 048
  8. LITHIUM [Concomitant]
     Indication: BIPOLAR DISORDER
     Dosage: 150MG IN AM AND 350 IN PM
     Route: 048
  9. LITHIUM [Concomitant]
     Indication: VICTIM OF SPOUSAL ABUSE
  10. LITHIUM [Concomitant]
     Indication: INJURY
  11. UNKNOWN OTHER MEDICATIONS [Concomitant]
     Indication: DRUG USE FOR UNKNOWN INDICATION

REACTIONS (3)
  - AFFECT LABILITY [None]
  - EATING DISORDER [None]
  - TREMOR [None]
